FAERS Safety Report 4390314-6 (Version None)
Quarter: 2004Q2

REPORT INFORMATION
  Report Type: 
  Country: None (occurrence: None)
  Receive Date: 20040630
  Receipt Date: 20040621
  Transmission Date: 20050107
  Serious: Yes (Hospitalization)
  Sender: FDA-Public Use
  Company Number: STA-AE-04-MTX-275

PATIENT
  Age: 59 Year
  Sex: Male

DRUGS (4)
  1. METHOTREXATE [Suspect]
     Dosage: 7.5 MG 1X PER 1WK, ORAL
     Route: 048
     Dates: start: 20010321, end: 20040526
  2. ENBREL [Suspect]
     Indication: RHEUMATOID ARTHRITIS
     Dosage: 25 MG 2X PER 1 WK, SC
     Route: 058
     Dates: start: 20021108, end: 20040526
  3. TOPRAL (SULTOPRIDE) [Concomitant]
  4. PRAVACHOL [Concomitant]

REACTIONS (1)
  - BURSITIS INFECTIVE [None]
